FAERS Safety Report 5763905-5 (Version None)
Quarter: 2008Q2

REPORT INFORMATION
  Report Type: 
  Country: None (occurrence: None)
  Receive Date: 20080606
  Receipt Date: 20080606
  Transmission Date: 20081010
  Serious: Yes (Other)
  Sender: FDA-Public Use
  Company Number: None

PATIENT
  Age: 3 Year
  Sex: Male
  Weight: 13.8347 kg

DRUGS (2)
  1. WATER BABIES UVA/UVB SUNBLK 30 SPF COPPERTONE [Suspect]
     Indication: PROPHYLAXIS
     Dosage: APPLIED TOPICLY ONCE CUTANEOUS
     Route: 003
     Dates: start: 20080527, end: 20080527
  2. WATER BABIES UVA/UVB SUNBLK 30 SPF COPPERTONE [Suspect]
     Indication: SUNBURN
     Dosage: APPLIED TOPICLY ONCE CUTANEOUS
     Route: 003
     Dates: start: 20080527, end: 20080527

REACTIONS (2)
  - LOGORRHOEA [None]
  - RASH [None]
